FAERS Safety Report 4818348-5 (Version None)
Quarter: 2005Q4

REPORT INFORMATION
  Report Type: 
  Country: None (occurrence: None)
  Receive Date: 20051031
  Receipt Date: 20051020
  Transmission Date: 20060501
  Serious: Yes (Life-Threatening, Other)
  Sender: FDA-Public Use
  Company Number: 2005JP001689

PATIENT
  Age: 65 Year
  Sex: Female
  Weight: 48 kg

DRUGS (16)
  1. TACROLIMUS CAPSULES (TACROLIMUS) CAPSULE [Suspect]
     Indication: RHEUMATOID ARTHRITIS
     Dosage: 1.50 MG, D, ORAL
     Route: 048
     Dates: start: 20050625, end: 20050805
  2. RHEUMATREX [Suspect]
     Indication: RHEUMATOID ARTHRITIS
     Dosage: 8.00 MG, WEEKLY, ORAL
     Route: 048
     Dates: end: 20050901
  3. PREDNISOLONE [Suspect]
     Indication: RHEUMATOID ARTHRITIS
     Dosage: 10.00 MG, 10.00 MG, D, ORAL; 100.00 MG, D, IV NOS
     Route: 048
     Dates: start: 20050902
  4. BAKTAR(SULFAMETHOXAZOLE, TRIMETHOPRIM) TABLET [Suspect]
     Indication: PROPHYLAXIS
     Dosage: BID, ORAL
     Route: 048
  5. MINOCYCLINE HCL [Suspect]
     Indication: ORAL INFECTION
     Dosage: 100.00 MG, BID, ORAL; 100.00 MG, BID, IV NOS
     Route: 048
     Dates: start: 20050824, end: 20050901
  6. MINOCYCLINE HCL [Suspect]
     Indication: ORAL INFECTION
     Dosage: 100.00 MG, BID, ORAL; 100.00 MG, BID, IV NOS
     Route: 048
     Dates: start: 20050909
  7. SPIRONOLACTONE [Concomitant]
  8. ISCONTIN (ISONIAZID) [Concomitant]
  9. OMEPRAZOLE [Concomitant]
  10. ACTONEL [Concomitant]
  11. FUROSEMIDE [Concomitant]
  12. GASMOTIN (MOSAPRIDE CITRATE) [Concomitant]
  13. WARFARIN SODIUM [Concomitant]
  14. KAMAG G (MAGNESIUM OXIDE) [Concomitant]
  15. MOHRUS (KETOPROFEN) [Concomitant]
  16. VOLTAREN [Concomitant]

REACTIONS (5)
  - ANOREXIA [None]
  - DISSEMINATED INTRAVASCULAR COAGULATION [None]
  - ORAL INFECTION [None]
  - PANCYTOPENIA [None]
  - STOMATITIS [None]
